FAERS Safety Report 8266069-1 (Version None)
Quarter: 2012Q2

REPORT INFORMATION
  Report Type: 
  Country: None (occurrence: None)
  Receive Date: 20120406
  Receipt Date: 20120330
  Transmission Date: 20120825
  Serious: Yes (Hospitalization)
  Sender: FDA-Public Use
  Company Number: SE-ABBOTT-12P-150-0920073-00

PATIENT
  Sex: Female

DRUGS (7)
  1. METHOTREXATE [Concomitant]
     Indication: PSORIATIC ARTHROPATHY
     Dates: start: 19910101, end: 20110901
  2. COX-1-INHIBITORS [Concomitant]
     Indication: PSORIATIC ARTHROPATHY
     Dosage: SOMETIMES
  3. ENBREL [Suspect]
     Indication: PSORIATIC ARTHROPATHY
     Dates: start: 20030901, end: 20080201
  4. REMICADE [Suspect]
     Indication: PSORIATIC ARTHROPATHY
     Dates: start: 19991101, end: 20030901
  5. HUMIRA [Suspect]
     Indication: PSORIATIC ARTHROPATHY
     Route: 058
     Dates: start: 20090512, end: 20110901
  6. CORTISONE [Concomitant]
     Indication: PSORIATIC ARTHROPATHY
     Dosage: LOW DOSE
  7. ENBREL [Suspect]
     Dates: start: 20081001, end: 20090101

REACTIONS (10)
  - DYSPNOEA [None]
  - C-REACTIVE PROTEIN INCREASED [None]
  - RENAL ABSCESS [None]
  - MALAISE [None]
  - TACHYCARDIA [None]
  - NIGHT SWEATS [None]
  - LUNG ABSCESS [None]
  - RED BLOOD CELL SEDIMENTATION RATE INCREASED [None]
  - PYREXIA [None]
  - PSORIATIC ARTHROPATHY [None]
